FAERS Safety Report 20442965 (Version 2)
Quarter: 2022Q1

REPORT INFORMATION
  Report Type: Report from Study
  Country: ES (occurrence: ES)
  Receive Date: 20220208
  Receipt Date: 20220223
  Transmission Date: 20220423
  Serious: Yes (Death, Other)
  Sender: FDA-Public Use
  Company Number: ES-GLAXOSMITHKLINE-ES2022GSK020777

PATIENT
  Age: 67 Year
  Sex: Female
  Weight: 54 kg

DRUGS (1)
  1. DOSTARLIMAB [Suspect]
     Active Substance: DOSTARLIMAB
     Indication: Endometrial cancer
     Dosage: UNK
     Route: 042

REACTIONS (5)
  - Urogenital fistula [Fatal]
  - Urogenital haemorrhage [Fatal]
  - Tumour haemorrhage [Fatal]
  - Bladder disorder [Fatal]
  - Tissue infiltration [Fatal]

NARRATIVE: CASE EVENT DATE: 20220127
